FAERS Safety Report 13508908 (Version 3)
Quarter: 2018Q1

REPORT INFORMATION
  Report Type: Report from Study
  Country: AU (occurrence: AU)
  Receive Date: 20170503
  Receipt Date: 20180223
  Transmission Date: 20180508
  Serious: Yes (Hospitalization, Other)
  Sender: FDA-Public Use
  Company Number: AU-JNJFOC-20170401720

PATIENT
  Age: 71 Year
  Sex: Male
  Weight: 61.1 kg

DRUGS (30)
  1. RADIUM RA 223 DICHLORIDE [Suspect]
     Active Substance: RADIUM RA-223 DICHLORIDE
     Indication: METASTASES TO BONE
     Dosage: DOSE 50 KBQ
     Route: 042
     Dates: start: 20150224, end: 20150715
  2. ERGOCALCIFEROL. [Concomitant]
     Active Substance: ERGOCALCIFEROL
     Indication: VITAMIN D DEFICIENCY
     Route: 048
     Dates: start: 2013
  3. PLACEBO [Suspect]
     Active Substance: UNSPECIFIED INGREDIENT
     Indication: PROSTATE CANCER METASTATIC
     Route: 042
  4. PREDNISOLONE. [Suspect]
     Active Substance: PREDNISOLONE
     Indication: PROSTATE CANCER METASTATIC
     Route: 048
     Dates: start: 20150715, end: 20150731
  5. PREDNISOLONE. [Suspect]
     Active Substance: PREDNISOLONE
     Indication: METASTASES TO BONE
     Route: 048
     Dates: start: 20150715, end: 20150731
  6. ABIRATERONE ACETATE. [Suspect]
     Active Substance: ABIRATERONE ACETATE
     Indication: PROSTATE CANCER METASTATIC
     Route: 048
     Dates: start: 20150224, end: 20150730
  7. PLACEBO [Suspect]
     Active Substance: UNSPECIFIED INGREDIENT
     Indication: PROSTATE CANCER METASTATIC
     Dosage: DOSE 50 KBQ
     Route: 042
     Dates: start: 20150224, end: 20150715
  8. PREDNISOLONE. [Suspect]
     Active Substance: PREDNISOLONE
     Indication: PROSTATE CANCER METASTATIC
     Route: 048
     Dates: start: 20150224, end: 20150325
  9. ABIRATERONE ACETATE. [Suspect]
     Active Substance: ABIRATERONE ACETATE
     Indication: METASTASES TO BONE
     Route: 048
     Dates: start: 20150224, end: 20150730
  10. RADIUM RA 223 DICHLORIDE [Suspect]
     Active Substance: RADIUM RA-223 DICHLORIDE
     Indication: PROSTATE CANCER METASTATIC
     Dosage: DOSE 50 KBQ
     Route: 042
     Dates: start: 20150224, end: 20150715
  11. RADIUM RA 223 DICHLORIDE [Suspect]
     Active Substance: RADIUM RA-223 DICHLORIDE
     Indication: METASTASES TO BONE
     Route: 042
  12. TIOTROPIUM [Concomitant]
     Active Substance: TIOTROPIUM
     Indication: CHRONIC OBSTRUCTIVE PULMONARY DISEASE
     Route: 055
     Dates: start: 2013
  13. RADIUM RA 223 DICHLORIDE [Suspect]
     Active Substance: RADIUM RA-223 DICHLORIDE
     Indication: PROSTATE CANCER METASTATIC
     Route: 042
  14. PREDNISOLONE. [Suspect]
     Active Substance: PREDNISOLONE
     Indication: METASTASES TO BONE
     Route: 048
     Dates: start: 20150325, end: 20150422
  15. PREDNISOLONE. [Suspect]
     Active Substance: PREDNISOLONE
     Indication: PROSTATE CANCER METASTATIC
     Route: 048
     Dates: start: 20150520, end: 20150616
  16. PREDNISOLONE. [Suspect]
     Active Substance: PREDNISOLONE
     Indication: METASTASES TO BONE
     Route: 048
     Dates: start: 20150617, end: 20150714
  17. PREDNISOLONE. [Suspect]
     Active Substance: PREDNISOLONE
     Indication: METASTASES TO BONE
     Route: 048
     Dates: start: 20150801
  18. PANTOPRAZOLE [Concomitant]
     Active Substance: PANTOPRAZOLE
     Indication: GASTROOESOPHAGEAL REFLUX DISEASE
     Route: 048
     Dates: start: 2013
  19. PREDNISOLONE. [Suspect]
     Active Substance: PREDNISOLONE
     Indication: PROSTATE CANCER METASTATIC
     Route: 048
     Dates: start: 20150325, end: 20150422
  20. PREDNISOLONE. [Suspect]
     Active Substance: PREDNISOLONE
     Indication: PROSTATE CANCER METASTATIC
     Route: 048
     Dates: start: 20150422, end: 20150519
  21. SALMETEROL [Concomitant]
     Active Substance: SALMETEROL
     Indication: ASTHMA
     Dosage: 20-250 MCG PER DAY
     Route: 055
     Dates: start: 2010
  22. PREDNISOLONE. [Suspect]
     Active Substance: PREDNISOLONE
     Indication: PROSTATE CANCER METASTATIC
     Route: 048
     Dates: start: 20150617, end: 20150714
  23. PREDNISOLONE. [Suspect]
     Active Substance: PREDNISOLONE
     Indication: PROSTATE CANCER METASTATIC
     Route: 048
     Dates: start: 20150801
  24. CALTRATE [Concomitant]
     Active Substance: CALCIUM CARBONATE
     Indication: OSTEOPENIA
     Route: 048
     Dates: start: 2013
  25. PLACEBO [Suspect]
     Active Substance: UNSPECIFIED INGREDIENT
     Indication: METASTASES TO BONE
     Dosage: DOSE 50 KBQ
     Route: 042
     Dates: start: 20150224, end: 20150715
  26. PLACEBO [Suspect]
     Active Substance: UNSPECIFIED INGREDIENT
     Indication: METASTASES TO BONE
     Route: 042
  27. PREDNISOLONE. [Suspect]
     Active Substance: PREDNISOLONE
     Indication: METASTASES TO BONE
     Route: 048
     Dates: start: 20150224, end: 20150325
  28. PREDNISOLONE. [Suspect]
     Active Substance: PREDNISOLONE
     Indication: METASTASES TO BONE
     Route: 048
     Dates: start: 20150422, end: 20150519
  29. PREDNISOLONE. [Suspect]
     Active Substance: PREDNISOLONE
     Indication: METASTASES TO BONE
     Route: 048
     Dates: start: 20150520, end: 20150616
  30. RAMIPRIL. [Concomitant]
     Active Substance: RAMIPRIL
     Indication: HYPERTENSION
     Route: 048
     Dates: start: 2013

REACTIONS (2)
  - Bowen^s disease [Recovered/Resolved]
  - Diarrhoea [Recovered/Resolved]

NARRATIVE: CASE EVENT DATE: 201502
